FAERS Safety Report 22901266 (Version 2)
Quarter: 2023Q4

REPORT INFORMATION
  Report Type: Spontaneous
  Country: KR (occurrence: KR)
  Receive Date: 20230904
  Receipt Date: 20231031
  Transmission Date: 20240110
  Serious: No
  Sender: FDA-Public Use
  Company Number: KR-BAYER-2023A123153

PATIENT
  Age: 72 Year

DRUGS (3)
  1. EYLEA [Suspect]
     Active Substance: AFLIBERCEPT
     Indication: Neovascular age-related macular degeneration
     Dosage: 5 CONSECUTIVE BIMONTHLY AFLIBERCEPT INJECTIONS, SOLUTION FOR INJECTION, 40MG/ML
  2. EYLEA [Suspect]
     Active Substance: AFLIBERCEPT
     Dosage: SIX WEEKS AFTER THE FIRST SHORTENED INJECTION, SOLUTION FOR INJECTION, 40MG/ML
  3. EYLEA [Suspect]
     Active Substance: AFLIBERCEPT
     Dosage: THE ELONGATION OF THE INTERVAL TO 2 MONTHS (D), SOLUTION FOR INJECTION, 40MG/ML

REACTIONS (2)
  - Inappropriate schedule of product administration [Unknown]
  - Therapeutic product effect incomplete [Unknown]
